FAERS Safety Report 9745653 (Version 1)
Quarter: 2013Q4

REPORT INFORMATION
  Report Type: Spontaneous
  Country: US (occurrence: None)
  Receive Date: 20131206
  Receipt Date: 20131206
  Transmission Date: 20140711
  Serious: No
  Sender: FDA-Public Use
  Company Number: None

PATIENT
  Age: 22 Year
  Sex: Male
  Weight: 60.6 kg

DRUGS (8)
  1. CYTARABINE [Suspect]
  2. DAUNORUBICIN [Suspect]
  3. ETOPOSIDE (VP-16) [Suspect]
  4. MYLOTARG [Suspect]
  5. HYDROCORTISONE [Concomitant]
  6. MYCOPHENOLATE MOFETIL [Concomitant]
  7. TACROLIMUS [Concomitant]
  8. CYCLOSPORINE [Concomitant]

REACTIONS (2)
  - Second primary malignancy [None]
  - Refractory anaemia with an excess of blasts [None]
